FAERS Safety Report 7784475-6 (Version None)
Quarter: 2011Q3

REPORT INFORMATION
  Report Type: 
  Country: None (occurrence: None)
  Receive Date: 20110928
  Receipt Date: 20110919
  Transmission Date: 20111222
  Serious: Yes (Other)
  Sender: FDA-Public Use
  Company Number: PHHY2011GB84306

PATIENT
  Age: 28 Year
  Sex: Female

DRUGS (1)
  1. MINOCYCLINE HCL [Suspect]

REACTIONS (6)
  - RASH MACULO-PAPULAR [None]
  - LYMPHOCYTOSIS [None]
  - EOSINOPHILIA [None]
  - DRUG ERUPTION [None]
  - DRUG RASH WITH EOSINOPHILIA AND SYSTEMIC SYMPTOMS [None]
  - FACE OEDEMA [None]
